FAERS Safety Report 21579276 (Version 1)
Quarter: 2022Q4

REPORT INFORMATION
  Report Type: Spontaneous
  Country: US (occurrence: None)
  Receive Date: 20221110
  Receipt Date: 20221110
  Transmission Date: 20230113
  Serious: Yes (unspecified)
  Sender: FDA-Public Use
  Company Number: None

PATIENT
  Age: 42 Year
  Sex: Female
  Weight: 77.4 kg

DRUGS (1)
  1. VIVITROL [Suspect]
     Active Substance: NALTREXONE

REACTIONS (6)
  - Injection site swelling [None]
  - Injection site induration [None]
  - Injection site pain [None]
  - Injection site pruritus [None]
  - Injection site bruising [None]
  - Reaction to excipient [None]

NARRATIVE: CASE EVENT DATE: 20220725
